FAERS Safety Report 11287799 (Version 2)
Quarter: 2017Q1

REPORT INFORMATION
  Report Type: Report from Study
  Country: US (occurrence: US)
  Receive Date: 20150721
  Receipt Date: 20170320
  Transmission Date: 20170428
  Serious: Yes (Congenital Anomaly, Other)
  Sender: FDA-Public Use
  Company Number: US-AUROBINDO-AUR-APL-2013-05683

PATIENT
  Sex: Female
  Weight: 3.41 kg

DRUGS (4)
  1. PEGYLATED INTERFERON ALPHA NOS [Suspect]
     Active Substance: PEGINTERFERON ALFA-2A OR PEGINTERFERON ALFA-2B
     Indication: HEPATITIS C
     Dosage: UNK UNK,UNK,
     Route: 064
     Dates: end: 201203
  2. ALBUTEROL. [Concomitant]
     Active Substance: ALBUTEROL
     Indication: ASTHMA
     Dosage: UNK UNK,UNK,,2 PUFFS AS REQUIRED
     Route: 064
  3. RIBAVARINE TABLETS 200MG [Suspect]
     Active Substance: RIBAVIRIN
     Indication: HEPATITIS C
     Dosage: UNK UNK,UNK,
     Route: 064
     Dates: end: 201203
  4. PRENATAL VITAMINS [Concomitant]
     Active Substance: VITAMINS
     Indication: PREGNANCY
     Dosage: 2 PUFFS, 1 DF,DAILY,
     Route: 064

REACTIONS (6)
  - Jaundice neonatal [Unknown]
  - Protrusion tongue [Unknown]
  - Infantile vomiting [Unknown]
  - Atrial septal defect [Recovered/Resolved]
  - Foetal exposure during pregnancy [Unknown]
  - Congenital arterial malformation [Recovered/Resolved]
